FAERS Safety Report 8823691 (Version 5)
Quarter: 2013Q2

REPORT INFORMATION
  Report Type: Spontaneous
  Country: US (occurrence: US)
  Receive Date: 20121003
  Receipt Date: 20130606
  Transmission Date: 20140414
  Serious: Yes (Hospitalization, Other)
  Sender: FDA-Public Use
  Company Number: US-PFIZER INC-2012242589

PATIENT
  Age: 67 Year
  Sex: Female
  Weight: 117 kg

DRUGS (10)
  1. LYRICA [Suspect]
     Indication: NEUROPATHY PERIPHERAL
     Dosage: UNK
     Route: 048
     Dates: start: 20120703, end: 20120705
  2. LYRICA [Suspect]
     Indication: DIABETIC NEUROPATHY
  3. HUMULIN U [Concomitant]
     Indication: DIABETES MELLITUS
     Dosage: UNK
  4. ALLOPURINOL [Concomitant]
     Dosage: UNK
  5. AMITRIPTYLINE [Concomitant]
     Dosage: UNK
  6. ATENOLOL [Concomitant]
     Indication: HYPERTENSION
     Dosage: UNK
  7. BUPROPION [Concomitant]
     Dosage: UNK
  8. CALCIUM [Concomitant]
     Dosage: UNK
  9. CHOLECALCIFEROL [Concomitant]
     Dosage: UNK
  10. CETIRIZINE [Concomitant]
     Dosage: UNK

REACTIONS (14)
  - Dyskinesia [Unknown]
  - Muscular weakness [Unknown]
  - Fall [Unknown]
  - Lower limb fracture [Unknown]
  - Dysstasia [Unknown]
  - Activities of daily living impaired [Unknown]
  - Injury [Not Recovered/Not Resolved]
  - Gait disturbance [Not Recovered/Not Resolved]
  - Memory impairment [Unknown]
  - Pain in extremity [Unknown]
  - Muscle spasms [Unknown]
  - Musculoskeletal disorder [Unknown]
  - Joint swelling [Not Recovered/Not Resolved]
  - Contusion [Not Recovered/Not Resolved]
